FAERS Safety Report 16266597 (Version 1)
Quarter: 2019Q2

REPORT INFORMATION
  Report Type: Spontaneous
  Country: US (occurrence: US)
  Receive Date: 20190502
  Receipt Date: 20190502
  Transmission Date: 20190711
  Serious: No
  Sender: FDA-Public Use
  Company Number: US-LEADING PHARMA, LLC-2066560

PATIENT
  Age: 46 Year
  Sex: Male

DRUGS (1)
  1. LORAZEPAM. [Suspect]
     Active Substance: LORAZEPAM
     Indication: ANXIETY

REACTIONS (3)
  - Drug ineffective [None]
  - Feeling jittery [Recovered/Resolved]
  - Diarrhoea [Recovered/Resolved]
